FAERS Safety Report 21672570 (Version 1)
Quarter: 2022Q4

REPORT INFORMATION
  Report Type: Report from Study
  Country: ES (occurrence: ES)
  Receive Date: 20221202
  Receipt Date: 20221202
  Transmission Date: 20230113
  Serious: Yes (Hospitalization)
  Sender: FDA-Public Use
  Company Number: None

PATIENT
  Age: 50 Year
  Sex: Male

DRUGS (2)
  1. CISPLATIN [Interacting]
     Active Substance: CISPLATIN
     Indication: Product used for unknown indication
     Dosage: CONCENTRATE FOR SOLUTION FOR INFUSION EFG, 1 VIAL OF?100 ML
     Dates: start: 20220127, end: 20220317
  2. ETOPOSIDE [Interacting]
     Active Substance: ETOPOSIDE
     Indication: Product used for unknown indication
     Dosage: STRENGTH 20 MG/ML , EFG, 1 VIAL OF 50 ML
     Dates: start: 20220127, end: 20220317

REACTIONS (2)
  - Febrile neutropenia [Recovered/Resolved]
  - Drug interaction [Unknown]

NARRATIVE: CASE EVENT DATE: 20220208
